FAERS Safety Report 9660579 (Version 2)
Quarter: 2013Q4

REPORT INFORMATION
  Report Type: Spontaneous
  Country: US (occurrence: US)
  Receive Date: 20131031
  Receipt Date: 20131105
  Transmission Date: 20140711
  Serious: Yes (Hospitalization, Other)
  Sender: FDA-Public Use
  Company Number: US-TEVA-440975USA

PATIENT
  Sex: Male
  Weight: 63.56 kg

DRUGS (4)
  1. CLOZAPINE [Suspect]
     Indication: PSYCHOTIC DISORDER
  2. LUVOX [Interacting]
  3. KLONOPIN [Concomitant]
  4. PROTON PUMP INHIBITOR [Concomitant]

REACTIONS (11)
  - Parkinsonism [Unknown]
  - Psychotic disorder [Unknown]
  - Obsessive-compulsive disorder [Unknown]
  - Confusional state [Unknown]
  - Toxicity to various agents [Not Recovered/Not Resolved]
  - Drug interaction [Unknown]
  - Activities of daily living impaired [Unknown]
  - Urinary incontinence [Unknown]
  - Insomnia [Unknown]
  - Somnolence [Unknown]
  - Weight decreased [Unknown]
